FAERS Safety Report 7153759-7 (Version None)
Quarter: 2010Q4

REPORT INFORMATION
  Report Type: 
  Country: None (occurrence: None)
  Receive Date: 20101213
  Receipt Date: 20101026
  Transmission Date: 20110411
  Serious: No
  Sender: FDA-Public Use
  Company Number: US-ABBOTT-10P-163-0681327-00

PATIENT
  Sex: Female
  Weight: 81.72 kg

DRUGS (1)
  1. MERIDIA [Suspect]
     Indication: WEIGHT DECREASED
     Dates: start: 20100101, end: 20100101

REACTIONS (2)
  - FEELING ABNORMAL [None]
  - PALPITATIONS [None]
